FAERS Safety Report 10219381 (Version 1)
Quarter: 2014Q2

REPORT INFORMATION
  Report Type: Report from Study
  Country: CA (occurrence: CA)
  Receive Date: 20140605
  Receipt Date: 20140605
  Transmission Date: 20141212
  Serious: Yes (Other)
  Sender: FDA-Public Use
  Company Number: CA-UCBSA-2014000046

PATIENT
  Age: 69 Year
  Sex: Female
  Weight: 58 kg

DRUGS (15)
  1. BLINDED CERTOLIZUMAB PEGOL [Suspect]
     Indication: RHEUMATOID ARTHRITIS
     Dosage: 400 MG, 0-2-4
     Route: 058
     Dates: start: 20140430
  2. BLINDED CERTOLIZUMAB PEGOL [Suspect]
     Indication: RHEUMATOID ARTHRITIS
     Dosage: 400 MG, 0-2-4
     Route: 058
     Dates: start: 20140430
  3. BLINDED CERTOLIZUMAB PEGOL ASP [Suspect]
     Indication: RHEUMATOID ARTHRITIS
     Dosage: 400 MG, 0-2-4
     Route: 058
     Dates: start: 20140430
  4. BLINDED CERTOLIZUMAB PEGOL ASP [Suspect]
     Indication: RHEUMATOID ARTHRITIS
     Dosage: 400 MG, 0-2-4
     Route: 058
     Dates: start: 20140430
  5. BLINDED CERTOLIZUMAB PEGOL CD [Suspect]
     Indication: RHEUMATOID ARTHRITIS
     Dosage: 400 MG, 0-2-4
     Route: 058
     Dates: start: 20140430
  6. BLINDED CERTOLIZUMAB PEGOL CD [Suspect]
     Indication: RHEUMATOID ARTHRITIS
     Dosage: 400 MG, 0-2-4
     Route: 058
     Dates: start: 20140430
  7. BLINDED CERTOLIZUMAB PEGOL PSA [Suspect]
     Indication: RHEUMATOID ARTHRITIS
     Dosage: 400 MG, 0-2-4
     Route: 058
     Dates: start: 20140430
  8. BLINDED CERTOLIZUMAB PEGOL PSA [Suspect]
     Indication: RHEUMATOID ARTHRITIS
     Dosage: 400 MG, 0-2-4
     Route: 058
     Dates: start: 20140430
  9. BLINDED CERTOLIZUMAB PEGOL RA [Suspect]
     Indication: RHEUMATOID ARTHRITIS
     Dosage: 400 MG, 0-2-4
     Route: 058
     Dates: start: 20140430
  10. BLINDED CERTOLIZUMAB PEGOL RA [Suspect]
     Indication: RHEUMATOID ARTHRITIS
     Dosage: 400 MG, 0-2-4
     Route: 058
     Dates: start: 20140430
  11. MTX [Concomitant]
     Indication: RHEUMATOID ARTHRITIS
     Dosage: 25 MG, WEEKLY
     Route: 058
     Dates: start: 200509
  12. PLAQUENIL [Concomitant]
     Indication: RHEUMATOID ARTHRITIS
     Dosage: 300 MG, QD
     Route: 048
     Dates: start: 200509
  13. PREDNISONE [Concomitant]
     Indication: RHEUMATOID ARTHRITIS
     Dosage: 10 MG, QD
     Route: 048
     Dates: start: 2011
  14. ACIDE FOLIQUE [Concomitant]
     Indication: RHEUMATOID ARTHRITIS
     Dosage: 5 MG, 2/7 JRS
     Route: 048
     Dates: start: 201109
  15. ARIMIDEX [Concomitant]
     Indication: BREAST CANCER
     Dosage: 1 MG, QD
     Route: 048

REACTIONS (1)
  - Phlebitis [Not Recovered/Not Resolved]
